FAERS Safety Report 17586802 (Version 1)
Quarter: 2020Q1

REPORT INFORMATION
  Report Type: Spontaneous
  Country: FR (occurrence: FR)
  Receive Date: 20200326
  Receipt Date: 20200326
  Transmission Date: 20200409
  Serious: Yes (Hospitalization)
  Sender: FDA-Public Use
  Company Number: FR-BAXTER-2020BAX006152

PATIENT
  Age: 69 Year
  Sex: Male
  Weight: 62 kg

DRUGS (11)
  1. IMIPENEM/CILASTATIN VILLERTON [Suspect]
     Active Substance: CILASTATIN SODIUM\IMIPENEM
     Indication: PNEUMONIA
     Route: 042
     Dates: start: 20190114, end: 20190128
  2. TYGACIL [Suspect]
     Active Substance: TIGECYCLINE
     Indication: POLYCHONDRITIS
     Route: 042
     Dates: start: 20190304, end: 20190306
  3. GENTAMICIN. [Suspect]
     Active Substance: GENTAMICIN
     Indication: PNEUMONIA
     Route: 042
     Dates: start: 20190105, end: 20190107
  4. METRONIDAZOLE BAXTER 0,5 POUR CENT, SOLUTION INJECTABLE EN POCHE [Suspect]
     Active Substance: METRONIDAZOLE
     Indication: PNEUMONIA
     Route: 042
     Dates: start: 20190105, end: 20190107
  5. AZACTAM [Suspect]
     Active Substance: AZTREONAM
     Indication: PNEUMONIA
     Dosage: AZACTAM 1 G, POWDER AND SOLUTION FOR PARENTERAL USE
     Route: 042
     Dates: start: 20190111, end: 20190112
  6. VANCOMYCINE [Suspect]
     Active Substance: VANCOMYCIN
     Indication: PNEUMONIA
     Route: 042
     Dates: start: 20190119, end: 20190119
  7. CEFOTAXIME BASE [Suspect]
     Active Substance: CEFOTAXIME SODIUM
     Indication: PNEUMONIA
     Route: 042
     Dates: start: 20190105, end: 20190110
  8. VORICONAZOLE ARROW [Suspect]
     Active Substance: VORICONAZOLE
     Indication: PNEUMONIA
     Route: 042
     Dates: start: 20190111, end: 20190118
  9. CIPROFLOXACIN. [Suspect]
     Active Substance: CIPROFLOXACIN
     Indication: PNEUMONIA
     Route: 048
     Dates: start: 20190107, end: 20190110
  10. LINEZOLID KABI [Suspect]
     Active Substance: LINEZOLID
     Indication: PNEUMONIA
     Route: 042
     Dates: start: 20190110, end: 20190119
  11. LEVOFLOXACIN ARROW [Suspect]
     Active Substance: LEVOFLOXACIN
     Indication: PNEUMONIA
     Route: 042
     Dates: start: 20190111, end: 20190128

REACTIONS (1)
  - Clostridium difficile colitis [Recovered/Resolved]

NARRATIVE: CASE EVENT DATE: 201903
